FAERS Safety Report 9970262 (Version 1)
Quarter: 2014Q1

REPORT INFORMATION
  Report Type: Report from Study
  Country: US (occurrence: US)
  Receive Date: 20140306
  Receipt Date: 20140306
  Transmission Date: 20141002
  Serious: Yes (Death)
  Sender: FDA-Public Use
  Company Number: PHEH2014US004399

PATIENT
  Sex: Female

DRUGS (2)
  1. ILARIS [Suspect]
     Indication: FAMILIAL MEDITERRANEAN FEVER
     Dosage: 250 UNK, EVERY 8 WEEKS
     Route: 058
     Dates: start: 20120507, end: 20140116
  2. STERILE WATER [Concomitant]

REACTIONS (1)
  - Death [Fatal]
